FAERS Safety Report 5455777-3 (Version None)
Quarter: 2007Q3

REPORT INFORMATION
  Report Type: 
  Country: None (occurrence: None)
  Receive Date: 20070918
  Receipt Date: 20070228
  Transmission Date: 20080115
  Serious: Yes (Disabling, Other)
  Sender: FDA-Public Use
  Company Number: US-ASTRAZENECA-2006UW22658

PATIENT
  Age: 43 Year
  Sex: Female
  Weight: 120.5 kg

DRUGS (2)
  1. SEROQUEL [Suspect]
     Indication: DEPRESSION
     Route: 048
     Dates: start: 19990101, end: 20000101
  2. SEROQUEL [Suspect]
     Indication: STRESS
     Route: 048
     Dates: start: 19990101, end: 20000101

REACTIONS (3)
  - DIABETES MELLITUS [None]
  - GLAUCOMA [None]
  - KETOACIDOSIS [None]
